FAERS Safety Report 17576212 (Version 1)
Quarter: 2020Q1

REPORT INFORMATION
  Report Type: Spontaneous
  Country: US (occurrence: US)
  Receive Date: 20200324
  Receipt Date: 20200324
  Transmission Date: 20200409
  Serious: No
  Sender: FDA-Public Use
  Company Number: None

PATIENT
  Age: 39 Year
  Sex: Female
  Weight: 60.75 kg

DRUGS (1)
  1. ELURYNG [Suspect]
     Active Substance: ETHINYL ESTRADIOL\ETONOGESTREL
     Indication: CONTRACEPTION
     Dosage: ?          OTHER STRENGTH:UNKNOWN;QUANTITY:1 1 RING;OTHER FREQUENCY:MONTHLY;?
     Route: 067
     Dates: start: 20200303, end: 20200323

REACTIONS (10)
  - Hot flush [None]
  - Rash [None]
  - Ear discomfort [None]
  - Headache [None]
  - Acne [None]
  - Vaginal discharge [None]
  - Flushing [None]
  - Migraine [None]
  - Product substitution issue [None]
  - Discomfort [None]

NARRATIVE: CASE EVENT DATE: 20200303
